FAERS Safety Report 9005018 (Version 1)
Quarter: 2013Q1

REPORT INFORMATION
  Report Type: Report from Study
  Country: CA (occurrence: CA)
  Receive Date: 20130109
  Receipt Date: 20130109
  Transmission Date: 20140127
  Serious: Yes (Other)
  Sender: FDA-Public Use
  Company Number: CA-JNJFOC-20130102096

PATIENT
  Age: 61 Year
  Sex: Male
  Weight: 70.4 kg

DRUGS (2)
  1. REMICADE [Suspect]
     Indication: CROHN^S DISEASE
     Route: 042
     Dates: start: 20121220
  2. REMICADE [Suspect]
     Indication: CROHN^S DISEASE
     Dosage: INDUCTION DOSE AT 0, 2 AND 6 WEEKS
     Route: 042
     Dates: start: 20121206

REACTIONS (1)
  - Pulmonary embolism [Unknown]
